FAERS Safety Report 15721421 (Version 1)
Quarter: 2018Q4

REPORT INFORMATION
  Report Type: Spontaneous
  Country: CH (occurrence: CH)
  Receive Date: 20181214
  Receipt Date: 20181214
  Transmission Date: 20190205
  Serious: Yes (Other)
  Sender: FDA-Public Use
  Company Number: CH-REGENERON PHARMACEUTICALS, INC.-2018-48019

PATIENT

DRUGS (5)
  1. OZURDEX [Concomitant]
     Active Substance: DEXAMETHASONE
     Indication: PRODUCT USED FOR UNKNOWN INDICATION
     Dosage: FROM TIME TO TIME ,RIGHT EYE 4 TIME OZURDEX
  2. EYLEA [Suspect]
     Active Substance: AFLIBERCEPT
     Dosage: FURTHER TREATMENT WITH EYLEA BILATERAL , TREAT AND EXTEND ACCORDING TO COURSE
     Route: 031
  3. EYLEA [Suspect]
     Active Substance: AFLIBERCEPT
     Dosage: UNK UNK, Q6WK
     Route: 031
  4. EYLEA [Suspect]
     Active Substance: AFLIBERCEPT
     Indication: DIABETIC RETINAL OEDEMA
     Dosage: UNK
     Route: 031
     Dates: start: 201604
  5. OZURDEX [Concomitant]
     Active Substance: DEXAMETHASONE
     Dosage: FROM TIME TO TIME, LEFT 1X OZURDEX

REACTIONS (4)
  - Vitreous adhesions [Unknown]
  - Macular fibrosis [Unknown]
  - Visual acuity reduced [Unknown]
  - Metamorphopsia [Unknown]

NARRATIVE: CASE EVENT DATE: 201701
